FAERS Safety Report 4370585-2 (Version None)
Quarter: 2004Q2

REPORT INFORMATION
  Report Type: 
  Country: None (occurrence: None)
  Receive Date: 20040521
  Receipt Date: 20040227
  Transmission Date: 20050107
  Serious: Yes (Other)
  Sender: FDA-Public Use
  Company Number: 200414144BWH

PATIENT
  Age: 8 Year
  Sex: Female
  Weight: 18.1439 kg

DRUGS (11)
  1. CIPRO [Suspect]
     Indication: URINARY TRACT INFECTION
     Dosage: 500 MG, TOTAL DAILY, ORAL
     Route: 048
     Dates: start: 20040224, end: 20040225
  2. CELEBREX [Concomitant]
  3. THALIDOMIDE [Concomitant]
  4. FAMOTIDINE [Concomitant]
  5. SENNA [Concomitant]
  6. FLEET PHOSPHO-SODA [Concomitant]
  7. ROBITUSSIN [Concomitant]
  8. TEMODAR [Concomitant]
  9. ZOFRAN [Concomitant]
  10. TAMOXIFEN CITRATE [Concomitant]
  11. MEGACE [Concomitant]

REACTIONS (6)
  - CONVULSION [None]
  - DROOLING [None]
  - DYSTONIA [None]
  - GRAND MAL CONVULSION [None]
  - MASKED FACIES [None]
  - TIC [None]
